FAERS Safety Report 17991396 (Version 2)
Quarter: 2020Q4

REPORT INFORMATION
  Report Type: Report from Study
  Country: ZA (occurrence: ZA)
  Receive Date: 20200707
  Receipt Date: 20201015
  Transmission Date: 20210113
  Serious: Yes (Other)
  Sender: FDA-Public Use
  Company Number: NVSC2019ZA019967

PATIENT
  Age: 64 Year
  Sex: Female

DRUGS (1)
  1. TUVIGIN [Suspect]
     Active Substance: FINGOLIMOD HYDROCHLORIDE
     Indication: MULTIPLE SCLEROSIS
     Dosage: 0.5 MG, QD
     Route: 048
     Dates: start: 20151020, end: 20201011

REACTIONS (4)
  - Herpes zoster [Unknown]
  - Demyelination [Unknown]
  - White matter lesion [Unknown]
  - Eye infection [Unknown]

NARRATIVE: CASE EVENT DATE: 20201011
